FAERS Safety Report 8595070-3 (Version None)
Quarter: 2012Q3

REPORT INFORMATION
  Report Type: 
  Country: None (occurrence: None)
  Receive Date: 20120815
  Receipt Date: 20120801
  Transmission Date: 20120928
  Serious: Yes (Hospitalization)
  Sender: FDA-Public Use
  Company Number: TW-MYLANLABS-2012S1016110

PATIENT
  Age: 34 Year
  Sex: Female

DRUGS (4)
  1. HALOPERIDOL [Suspect]
     Indication: BINGE DRINKING
     Dosage: 20 MG/DAY
     Route: 065
  2. TRIHEXYPHENIDYL HCL [Concomitant]
     Indication: BINGE DRINKING
     Dosage: 4 MG/DAY
     Route: 065
  3. LITHIUM CARBONATE [Suspect]
     Indication: BIPOLAR DISORDER
     Route: 065
  4. CHLORPROMAZINE HCL [Suspect]
     Indication: BINGE DRINKING
     Dosage: 100 MG/DAY
     Route: 065

REACTIONS (4)
  - RHABDOMYOLYSIS [None]
  - DIABETIC HYPEROSMOLAR COMA [None]
  - RENAL FAILURE ACUTE [None]
  - NEUROLEPTIC MALIGNANT SYNDROME [None]
